FAERS Safety Report 9724234 (Version 2)
Quarter: 2014Q1

REPORT INFORMATION
  Report Type: Spontaneous
  Country: US (occurrence: US)
  Receive Date: 20131202
  Receipt Date: 20140102
  Transmission Date: 20141002
  Serious: Yes (Other)
  Sender: FDA-Public Use
  Company Number: US-AMGEN-USASP2013080461

PATIENT
  Age: 62 Year
  Sex: Female
  Weight: 60.77 kg

DRUGS (1)
  1. ENBREL [Suspect]
     Indication: RHEUMATOID ARTHRITIS
     Dosage: 50 MG, WEEKLY
     Route: 058
     Dates: start: 200302

REACTIONS (7)
  - Staphylococcal infection [Recovered/Resolved]
  - Fall [Recovered/Resolved]
  - Excoriation [Recovered/Resolved]
  - Joint swelling [Not Recovered/Not Resolved]
  - Skin tightness [Not Recovered/Not Resolved]
  - Arthropod bite [Unknown]
  - Skin infection [Recovered/Resolved]
